FAERS Safety Report 14188651 (Version 7)
Quarter: 2018Q2

REPORT INFORMATION
  Report Type: Spontaneous
  Country: US (occurrence: US)
  Receive Date: 20171114
  Receipt Date: 20180426
  Transmission Date: 20180711
  Serious: Yes (Hospitalization, Other)
  Sender: FDA-Public Use
  Company Number: US-ACTELION-A-NJ2017-162513

PATIENT
  Age: 59 Year
  Sex: Female

DRUGS (1)
  1. VALCHLOR [Suspect]
     Active Substance: MECHLORETHAMINE
     Indication: MYCOSIS FUNGOIDES
     Dosage: THIN FILM TO AFFECTED SKIN, QD
     Route: 061
     Dates: start: 20170829

REACTIONS (10)
  - Mycosis fungoides [Unknown]
  - Joint swelling [Unknown]
  - Pain in extremity [Unknown]
  - Disease progression [Unknown]
  - Foot operation [Unknown]
  - Nasopharyngitis [Not Recovered/Not Resolved]
  - Pruritus [Not Recovered/Not Resolved]
  - Fall [Unknown]
  - Pain [Unknown]
  - Application site irritation [Unknown]
